FAERS Safety Report 15506475 (Version 4)
Quarter: 2018Q4

REPORT INFORMATION
  Report Type: Spontaneous
  Country: US (occurrence: US)
  Receive Date: 20181016
  Receipt Date: 20181016
  Transmission Date: 20190205
  Serious: Yes (Other)
  Sender: FDA-Public Use
  Company Number: US-INFO-000709

PATIENT
  Age: 72 Year
  Sex: Female
  Weight: 83.91 kg

DRUGS (8)
  1. TRAMADOL. [Concomitant]
     Active Substance: TRAMADOL
     Route: 048
  2. GABAPENTIN. [Concomitant]
     Active Substance: GABAPENTIN
     Route: 048
  3. TAGRISSO [Concomitant]
     Active Substance: OSIMERTINIB
     Route: 048
  4. SYNTHROID [Concomitant]
     Active Substance: LEVOTHYROXINE SODIUM
     Route: 048
  5. METFORMIN ER [Concomitant]
     Active Substance: METFORMIN HYDROCHLORIDE
     Route: 048
  6. IMODIUM [Concomitant]
     Active Substance: LOPERAMIDE HYDROCHLORIDE
     Route: 048
  7. ZOLEDRONIC ACID INJECTION [Suspect]
     Active Substance: ZOLEDRONIC ACID
     Indication: METASTASES TO BONE
     Dosage: A TOTAL OF 11 INJECTIONS AS DIRECTED
     Route: 042
     Dates: start: 201708, end: 201805
  8. VITAMIN B12 [Concomitant]
     Active Substance: CYANOCOBALAMIN
     Route: 048

REACTIONS (12)
  - Arthralgia [Unknown]
  - Nasal congestion [Unknown]
  - Muscle spasms [Unknown]
  - Vision blurred [Unknown]
  - Crying [Unknown]
  - Weight increased [Unknown]
  - Asthenia [Unknown]
  - Hypoaesthesia [Unknown]
  - Affect lability [Unknown]
  - Back pain [Unknown]
  - Fatigue [Unknown]
  - Paraesthesia [Unknown]
